FAERS Safety Report 7984827-5 (Version None)
Quarter: 2011Q4

REPORT INFORMATION
  Report Type: 
  Country: None (occurrence: None)
  Receive Date: 20111216
  Receipt Date: 20110920
  Transmission Date: 20120403
  Serious: No
  Sender: FDA-Public Use
  Company Number: US-ALLERGAN-1112542US

PATIENT
  Age: 71 Year
  Sex: Female

DRUGS (1)
  1. LATISSE [Suspect]
     Indication: GROWTH OF EYELASHES
     Dosage: 1 GTT, UNK
     Route: 061
     Dates: start: 20110301

REACTIONS (6)
  - RASH PUSTULAR [None]
  - ERYTHEMA OF EYELID [None]
  - EYELID OEDEMA [None]
  - CHALAZION [None]
  - HORDEOLUM [None]
  - EYELID PAIN [None]
